FAERS Safety Report 7256597-X (Version None)
Quarter: 2011Q1

REPORT INFORMATION
  Report Type: 
  Country: None (occurrence: None)
  Receive Date: 20110129
  Receipt Date: 20100721
  Transmission Date: 20110831
  Serious: No
  Sender: FDA-Public Use
  Company Number: US-ABBOTT-10P-163-0659175-00

PATIENT
  Age: 48 Year
  Sex: Female

DRUGS (6)
  1. EVINE-28 [Concomitant]
     Indication: CONTRACEPTION
  2. CALTRATE [Concomitant]
     Indication: BLOOD CALCIUM
  3. DAILY VITAMINS [Concomitant]
     Indication: PRODUCT USED FOR UNKNOWN INDICATION
  4. NORTRIPTYLINE [Concomitant]
     Indication: PRURITUS
     Dosage: TWO TABLETS
  5. HYDROCHLOROTHIAZIDE [Concomitant]
     Indication: ABDOMINAL DISTENSION
  6. HUMIRA [Suspect]
     Indication: CROHN'S DISEASE
     Dates: start: 20100702

REACTIONS (1)
  - INJECTION SITE HAEMATOMA [None]
